FAERS Safety Report 5837880-9 (Version None)
Quarter: 2008Q3

REPORT INFORMATION
  Report Type: 
  Country: None (occurrence: None)
  Receive Date: 20080808
  Receipt Date: 20080512
  Transmission Date: 20090109
  Serious: No
  Sender: FDA-Public Use
  Company Number: A0727460A

PATIENT
  Age: 41 Year
  Sex: Female

DRUGS (3)
  1. PAXIL CR [Suspect]
     Indication: DEPRESSION
     Dosage: 62.5MG PER DAY
     Route: 048
  2. KLONOPIN [Concomitant]
  3. GEODON [Concomitant]

REACTIONS (2)
  - ANXIETY [None]
  - DEPRESSION [None]
